FAERS Safety Report 9950523 (Version 1)
Quarter: 2014Q1

REPORT INFORMATION
  Report Type: Report from Study
  Country: US (occurrence: US)
  Receive Date: 20140304
  Receipt Date: 20140304
  Transmission Date: 20141002
  Serious: No
  Sender: FDA-Public Use
  Company Number: US-ABBVIE-13P-163-1072058-00

PATIENT
  Age: 61 Year
  Sex: Female

DRUGS (4)
  1. HUMIRA [Suspect]
     Indication: CROHN^S DISEASE
  2. ACIPHEX [Concomitant]
     Indication: GASTROOESOPHAGEAL REFLUX DISEASE
     Dosage: 20MG DAILY
  3. NEFAZODONE [Concomitant]
     Indication: ANXIETY
     Dosage: 600MG DAILY
  4. LEXAPRO [Concomitant]
     Indication: ANXIETY
     Dosage: 10MG DAILY

REACTIONS (3)
  - Sensory disturbance [Not Recovered/Not Resolved]
  - Contusion [Not Recovered/Not Resolved]
  - Rash papular [Not Recovered/Not Resolved]
